FAERS Safety Report 7343347-1 (Version None)
Quarter: 2011Q1

REPORT INFORMATION
  Report Type: 
  Country: None (occurrence: None)
  Receive Date: 20110228
  Receipt Date: 20110217
  Transmission Date: 20110831
  Serious: Yes (Other)
  Sender: FDA-Public Use
  Company Number: WAES 1008FRA00018

PATIENT
  Age: 54 Year
  Sex: Male

DRUGS (14)
  1. TAB RALTEGRAVIR POTASSIUM [Suspect]
     Indication: HIV INFECTION
     Dosage: 800 MG/DAILY/PO
     Route: 048
     Dates: start: 20100530, end: 20100831
  2. AZITHROMYCIN [Concomitant]
  3. FOLINIC ACID [Concomitant]
  4. PYRIDOXINE [Concomitant]
  5. SULFAMETHOXAZOLE AND TRIMETHOPRIM [Concomitant]
  6. ISONIAZID [Suspect]
     Indication: TUBERCULOSIS
     Dosage: 400 MG/DAILY/PO
     Route: 048
     Dates: start: 20100522, end: 20100810
  7. ACYCLOVIR [Concomitant]
  8. OMEPRAZOLE [Concomitant]
  9. IVERMECTIN [Concomitant]
  10. LAMIVUDINE [Suspect]
     Indication: HIV INFECTION
     Dosage: 300 MG/DAILY/PO
     Route: 048
     Dates: start: 20100630
  11. CIPROFLOXACIN [Concomitant]
  12. RIFAMPIN [Suspect]
     Indication: TUBERCULOSIS
     Dosage: 600 MG/DAILY/PO
     Route: 048
     Dates: start: 20100522, end: 20100810
  13. TENOFOVIR DISOPROXIL FUMARATE [Suspect]
     Indication: HIV INFECTION
     Dosage: 300 MG/DAILY/PO
     Route: 048
     Dates: start: 20100530
  14. PYRAZINAMIDE [Concomitant]

REACTIONS (4)
  - LEUKOPENIA [None]
  - DRUG ERUPTION [None]
  - NEUTROPENIA [None]
  - MYOCARDIAL INFARCTION [None]
